FAERS Safety Report 17848424 (Version 1)
Quarter: 2020Q2

REPORT INFORMATION
  Report Type: Spontaneous
  Country: US (occurrence: US)
  Receive Date: 20200602
  Receipt Date: 20200602
  Transmission Date: 20200714
  Serious: Yes (Hospitalization, Other)
  Sender: FDA-Public Use
  Company Number: US-LUPIN PHARMACEUTICALS INC.-2020-02575

PATIENT
  Age: 19 Year
  Sex: Female

DRUGS (5)
  1. CALCIUM [Suspect]
     Active Substance: CALCIUM
     Dosage: UNK, 10.5 GRAM
     Route: 065
  2. CALCIUM [Suspect]
     Active Substance: CALCIUM
     Dosage: UNK, 30 G TOTAL OVER 12 HOURS
     Route: 065
  3. INSULIN [Concomitant]
     Active Substance: INSULIN NOS
     Indication: PRODUCT USED FOR UNKNOWN INDICATION
     Dosage: UNK, HIGH DOSE
     Route: 065
  4. AMLODIPINE [Suspect]
     Active Substance: AMLODIPINE BESYLATE
     Indication: PRODUCT USED FOR UNKNOWN INDICATION
     Dosage: UNK, OVERDOSE
     Route: 048
  5. CALCIUM [Suspect]
     Active Substance: CALCIUM
     Indication: PRODUCT USED FOR UNKNOWN INDICATION
     Dosage: UNK, 0.05 G/KG/HOUR, INFUSION
     Route: 065

REACTIONS (9)
  - Hypercalcaemia [Recovered/Resolved]
  - Anxiety [Recovered/Resolved]
  - Intentional overdose [Unknown]
  - Drug level increased [Recovered/Resolved]
  - Tachycardia [Recovered/Resolved]
  - Vomiting [Recovered/Resolved]
  - Abdominal pain [Recovered/Resolved]
  - Tachypnoea [Recovered/Resolved]
  - Metabolic acidosis [Recovered/Resolved]
